FAERS Safety Report 19367907 (Version 1)
Quarter: 2021Q2

REPORT INFORMATION
  Report Type: Other
  Country: CA (occurrence: CA)
  Receive Date: 20210603
  Receipt Date: 20210603
  Transmission Date: 20210717
  Serious: Yes (Other)
  Sender: FDA-Public Use
  Company Number: CA-APOTEX-2021AP012985

PATIENT
  Sex: Female

DRUGS (4)
  1. MYCOPHENOLATE MOFETIL. [Suspect]
     Active Substance: MYCOPHENOLATE MOFETIL
     Indication: PRODUCT USED FOR UNKNOWN INDICATION
     Dosage: UNK
     Route: 065
  2. ACTEMRA [Suspect]
     Active Substance: TOCILIZUMAB
     Indication: RHEUMATOID FACTOR POSITIVE
     Dosage: 162 MILLIGRAM, Q.WK.
     Route: 058
  3. ACTEMRA [Suspect]
     Active Substance: TOCILIZUMAB
     Dosage: UNK
     Route: 042
  4. CYCLOBENZAPRINE. [Concomitant]
     Active Substance: CYCLOBENZAPRINE
     Indication: BACK PAIN
     Dosage: UNK
     Route: 065

REACTIONS (8)
  - Joint swelling [Unknown]
  - Back pain [Unknown]
  - Adverse drug reaction [Unknown]
  - Ecchymosis [Unknown]
  - Arthralgia [Unknown]
  - Rash [Unknown]
  - Erythema [Unknown]
  - Musculoskeletal stiffness [Unknown]
